FAERS Safety Report 5040502-0 (Version None)
Quarter: 2006Q2

REPORT INFORMATION
  Report Type: 
  Country: None (occurrence: None)
  Receive Date: 20060627
  Receipt Date: 20060627
  Transmission Date: 20061013
  Serious: Yes (Hospitalization)
  Sender: FDA-Public Use
  Company Number: None

PATIENT
  Sex: Male
  Weight: 84.8226 kg

DRUGS (7)
  1. NEXAVAR [Suspect]
     Indication: METASTATIC RENAL CELL CARCINOMA
     Dosage: 2 TABS BID PO
     Route: 048
     Dates: start: 20051201, end: 20060313
  2. OSCAL [Concomitant]
  3. LEVOXYL [Concomitant]
  4. BENZTROPINE MESYLATE [Concomitant]
  5. HALOPERIDOL [Concomitant]
  6. MORPHINE [Concomitant]
  7. MEGACE [Concomitant]

REACTIONS (6)
  - ABASIA [None]
  - ASTHENIA [None]
  - PAIN IN EXTREMITY [None]
  - PAIN OF SKIN [None]
  - PALMAR-PLANTAR ERYTHRODYSAESTHESIA SYNDROME [None]
  - PERONEAL NERVE PALSY [None]
